FAERS Safety Report 4912837-0 (Version None)
Quarter: 2006Q1

REPORT INFORMATION
  Report Type: 
  Country: None (occurrence: None)
  Receive Date: 20060210
  Receipt Date: 20060201
  Transmission Date: 20060701
  Serious: Yes (Other)
  Sender: FDA-Public Use
  Company Number: B0408688A

PATIENT
  Sex: Female

DRUGS (4)
  1. REQUIP [Suspect]
     Indication: RESTLESS LEGS SYNDROME
  2. PRAMIPEXOLE (PRAMIPEXOLE) [Suspect]
  3. ASPIRIN [Concomitant]
  4. GABAPENTIN [Concomitant]

REACTIONS (5)
  - FATIGUE [None]
  - HALLUCINATION [None]
  - HEADACHE [None]
  - HEART RATE IRREGULAR [None]
  - MEMORY IMPAIRMENT [None]
